FAERS Safety Report 10787456 (Version 1)
Quarter: 2015Q1

REPORT INFORMATION
  Report Type: Spontaneous
  Country: US (occurrence: US)
  Receive Date: 20150212
  Receipt Date: 20150212
  Transmission Date: 20150721
  Serious: No
  Sender: FDA-Public Use
  Company Number: US-TEVA-523140USA

PATIENT
  Age: 29 Year
  Sex: Female

DRUGS (1)
  1. RABEPRAZOLE [Suspect]
     Active Substance: RABEPRAZOLE
     Indication: GASTROOESOPHAGEAL REFLUX DISEASE
     Dosage: 20 MILLIGRAM DAILY; Q AM
     Route: 065
     Dates: start: 20141020, end: 20141110

REACTIONS (7)
  - Abdominal pain upper [Unknown]
  - Nervousness [Unknown]
  - Dysphagia [Unknown]
  - Product substitution issue [Unknown]
  - Constipation [Unknown]
  - Nausea [Unknown]
  - Abdominal distension [Unknown]
